FAERS Safety Report 4650194-8 (Version None)
Quarter: 2005Q2

REPORT INFORMATION
  Report Type: 
  Country: None (occurrence: None)
  Receive Date: 20050428
  Receipt Date: 20050407
  Transmission Date: 20051028
  Serious: Yes (Hospitalization)
  Sender: FDA-Public Use
  Company Number: 2005CG00708

PATIENT
  Age: 80 Year
  Sex: Male

DRUGS (10)
  1. NEXIUM [Suspect]
     Indication: GASTRIC ULCER
     Dosage: 40 MG DAILY PO
     Route: 048
     Dates: start: 20050215, end: 20050318
  2. CIPROFLOXACIN [Suspect]
     Dosage: 500 MG DAILY PO
     Route: 048
     Dates: start: 20050223, end: 20050309
  3. TARGOCID [Suspect]
     Dosage: 200 MG DAILY IV
     Route: 042
     Dates: start: 20050223, end: 20050309
  4. PLAVIX [Suspect]
     Dosage: 1 DF DAILY PO
     Route: 048
     Dates: start: 20050303, end: 20050308
  5. PLAVIX [Suspect]
     Dosage: 1 DF DAILY PO
     Route: 048
     Dates: start: 20050312, end: 20050318
  6. AUGMENTIN [Concomitant]
  7. CALCIPARINE [Concomitant]
  8. KARDEGIC [Concomitant]
  9. LUDIOMIL [Concomitant]
  10. LASIX [Concomitant]

REACTIONS (12)
  - DRUG INEFFECTIVE [None]
  - EOSINOPHILIA [None]
  - HYPERSENSITIVITY [None]
  - LEUKOPENIA [None]
  - PRURITUS [None]
  - PYREXIA [None]
  - RASH ERYTHEMATOUS [None]
  - RESPIRATORY DISTRESS [None]
  - SEPTIC SHOCK [None]
  - SKIN EXFOLIATION [None]
  - SKIN LESION [None]
  - THROMBOCYTOPENIA [None]
